FAERS Safety Report 9509145 (Version 2)
Quarter: 2013Q3

REPORT INFORMATION
  Report Type: Spontaneous
  Country: US (occurrence: US)
  Receive Date: 20130909
  Receipt Date: 20130909
  Transmission Date: 20140515
  Serious: No
  Sender: FDA-Public Use
  Company Number: US-BRISTOL-MYERS SQUIBB COMPANY-17359381

PATIENT
  Age: 31 Year
  Sex: Female

DRUGS (4)
  1. ABILIFY [Suspect]
     Indication: BIPOLAR I DISORDER
     Dosage: REDUCED: 0.5MG
     Route: 048
     Dates: start: 201301
  2. LAMICTAL [Concomitant]
  3. LOESTRIN [Concomitant]
     Dosage: 1 DF = 1/20 UNITS NOS
  4. ASPIRIN [Concomitant]

REACTIONS (1)
  - Vertigo [Unknown]
